FAERS Safety Report 8183606-6 (Version None)
Quarter: 2012Q1

REPORT INFORMATION
  Report Type: 
  Country: None (occurrence: None)
  Receive Date: 20120305
  Receipt Date: 20120302
  Transmission Date: 20120608
  Serious: Yes (Disabling)
  Sender: FDA-Public Use
  Company Number: US-PFIZER INC-2012056952

PATIENT
  Sex: Male
  Weight: 78.912 kg

DRUGS (3)
  1. LIPITOR [Suspect]
     Indication: BLOOD CHOLESTEROL INCREASED
     Dosage: 80 MG, 1X/DAY
     Route: 048
     Dates: start: 19990101
  2. POTASSIUM [Concomitant]
     Dosage: UNK
  3. LASIX [Concomitant]
     Dosage: UNK

REACTIONS (1)
  - CARDIAC DISORDER [None]
